FAERS Safety Report 19883872 (Version 1)
Quarter: 2021Q3

REPORT INFORMATION
  Report Type: Spontaneous
  Country: US (occurrence: US)
  Receive Date: 20210924
  Receipt Date: 20210924
  Transmission Date: 20211014
  Serious: Yes (Hospitalization)
  Sender: FDA-Public Use
  Company Number: None

PATIENT
  Age: 71 Year
  Sex: Female
  Weight: 98.6 kg

DRUGS (1)
  1. CASIRIVIMAB. [Suspect]
     Active Substance: CASIRIVIMAB
     Dosage: ?          OTHER FREQUENCY:ONCE;?
     Route: 042
     Dates: start: 20210716, end: 20210716

REACTIONS (12)
  - Myalgia [None]
  - Vomiting [None]
  - Pyrexia [None]
  - Dyspnoea [None]
  - Nausea [None]
  - Oropharyngeal pain [None]
  - Diarrhoea [None]
  - Hyperhidrosis [None]
  - Cough [None]
  - Hypoxia [None]
  - Chills [None]
  - Arthralgia [None]

NARRATIVE: CASE EVENT DATE: 20210716
